FAERS Safety Report 14193156 (Version 1)
Quarter: 2017Q4

REPORT INFORMATION
  Report Type: Spontaneous
  Country: CH (occurrence: CH)
  Receive Date: 20171115
  Receipt Date: 20171115
  Transmission Date: 20180321
  Serious: Yes (Hospitalization)
  Sender: FDA-Public Use
  Company Number: CH-MYLANLABS-2017M1071577

PATIENT
  Age: 41 Year
  Sex: Male

DRUGS (2)
  1. BRUFEN [Suspect]
     Active Substance: IBUPROFEN
     Indication: NASOPHARYNGITIS
     Route: 048
     Dates: start: 20171007, end: 20171008
  2. TERBINAFIN [Suspect]
     Active Substance: TERBINAFINE
     Indication: FUNGAL INFECTION
     Route: 048
     Dates: start: 201706, end: 20171005

REACTIONS (6)
  - Ocular icterus [Recovering/Resolving]
  - Faeces pale [Recovering/Resolving]
  - Yellow skin [Recovering/Resolving]
  - Chromaturia [Recovering/Resolving]
  - Nasopharyngitis [Recovering/Resolving]
  - Gastrooesophageal reflux disease [Recovering/Resolving]

NARRATIVE: CASE EVENT DATE: 20171005
